FAERS Safety Report 8975916 (Version 1)
Quarter: 2012Q4

REPORT INFORMATION
  Report Type: 
  Country: US (occurrence: US)
  Receive Date: 20121219
  Receipt Date: 20121219
  Transmission Date: 20130627
  Serious: No
  Sender: FDA-Public Use
  Company Number: US-AMGEN-USASP2012067965

PATIENT
  Age: 78 Year
  Sex: Female

DRUGS (16)
  1. PROLIA [Suspect]
     Indication: PRODUCT USED FOR UNKNOWN INDICATION
     Dosage: UNK
     Dates: start: 20121018
  2. SYNTHROID [Concomitant]
     Dosage: UNK
  3. PREDNISONE [Concomitant]
     Dosage: 2.5 mg, qd
  4. ARAVA [Concomitant]
     Dosage: UNK
  5. METHOTREXATE [Concomitant]
     Dosage: UNK
  6. DIOVAN [Concomitant]
     Dosage: UNK
  7. LASIX                              /00032601/ [Concomitant]
     Dosage: UNK
  8. BYSTOLIC [Concomitant]
     Dosage: UNK
  9. SPIRONOLACTONE [Concomitant]
     Dosage: UNK
  10. WARFARIN [Concomitant]
     Dosage: UNK
  11. ZOCOR [Concomitant]
     Dosage: UNK
  12. SINGULAIR [Concomitant]
     Dosage: UNK
  13. NORTRIPTYLINE [Concomitant]
     Dosage: UNK
  14. VITAMINS                           /00067501/ [Concomitant]
     Dosage: UNK
  15. CALCIUM [Concomitant]
     Dosage: UNK
  16. VITAMIN D /00107901/ [Concomitant]
     Dosage: UNK

REACTIONS (3)
  - Bone pain [Not Recovered/Not Resolved]
  - Myalgia [Unknown]
  - Headache [Unknown]
